FAERS Safety Report 18944421 (Version 1)
Quarter: 2021Q1

REPORT INFORMATION
  Report Type: Spontaneous
  Country: CA (occurrence: CA)
  Receive Date: 20210226
  Receipt Date: 20210226
  Transmission Date: 20210420
  Serious: Yes (Death)
  Sender: FDA-Public Use
  Company Number: CA-JNJFOC-20210239805

PATIENT
  Age: 93 Year
  Sex: Male
  Weight: 61 kg

DRUGS (17)
  1. DOCUSATE [Concomitant]
     Active Substance: DOCUSATE
  2. SENNOSIDES. [Concomitant]
     Active Substance: SENNOSIDES
  3. SPIRIVA [Concomitant]
     Active Substance: TIOTROPIUM BROMIDE MONOHYDRATE
     Route: 065
  4. ALENDRONATE [Concomitant]
     Active Substance: ALENDRONATE SODIUM
     Route: 065
  5. CALCIUM;COLECALCIFEROL [Concomitant]
     Active Substance: CALCIUM\CHOLECALCIFEROL
  6. ADVAIR HFA [Concomitant]
     Active Substance: FLUTICASONE PROPIONATE\SALMETEROL XINAFOATE
  7. QUETIAPINE. [Concomitant]
     Active Substance: QUETIAPINE
  8. SALBUTAMOL [Concomitant]
     Active Substance: ALBUTEROL
  9. ACETAMINOPHEN. [Concomitant]
     Active Substance: ACETAMINOPHEN
     Route: 065
  10. ASPRIN [Concomitant]
     Active Substance: ASPIRIN
  11. CHOLECALCIFEROL [Concomitant]
     Active Substance: CHOLECALCIFEROL
  12. PANTOPRAZOLE [Concomitant]
     Active Substance: PANTOPRAZOLE
  13. REMICADE [Suspect]
     Active Substance: INFLIXIMAB
     Indication: CROHN^S DISEASE
     Route: 042
  14. REMICADE [Suspect]
     Active Substance: INFLIXIMAB
     Indication: COLITIS ULCERATIVE
  15. LEVOTHYROXINE. [Concomitant]
     Active Substance: LEVOTHYROXINE
  16. POLYETHYLENE GLYCOL 4000 [Concomitant]
     Active Substance: POLYETHYLENE GLYCOL 4000
  17. TAMSULOSIN CR [Concomitant]
     Active Substance: TAMSULOSIN
     Route: 065

REACTIONS (10)
  - Pneumonia aspiration [Fatal]
  - General physical health deterioration [Fatal]
  - Agitation [Fatal]
  - Pneumonia [Fatal]
  - Sputum discoloured [Fatal]
  - Dyspnoea [Fatal]
  - Diarrhoea [Fatal]
  - Abdominal pain [Fatal]
  - Abdominal discomfort [Fatal]
  - Cough [Fatal]
